FAERS Safety Report 15051452 (Version 1)
Quarter: 2018Q2

REPORT INFORMATION
  Report Type: Report from Study
  Country: US (occurrence: US)
  Receive Date: 20180622
  Receipt Date: 20180622
  Transmission Date: 20180711
  Serious: Yes (Hospitalization)
  Sender: FDA-Public Use
  Company Number: US-BAYER-2018-065145

PATIENT
  Age: 64 Year
  Sex: Male

DRUGS (2)
  1. NEXAVAR [Suspect]
     Active Substance: SORAFENIB
     Indication: HEPATOCELLULAR CARCINOMA
     Dosage: 400 MG, DAILY
     Route: 048
     Dates: start: 20180331, end: 20180401
  2. NEXAVAR [Suspect]
     Active Substance: SORAFENIB
     Indication: HEPATOCELLULAR CARCINOMA
     Dosage: 400 MG, BID
     Route: 048
     Dates: start: 20180402, end: 201806

REACTIONS (8)
  - Off label use [None]
  - Weight decreased [None]
  - Intra-abdominal haemorrhage [None]
  - Fatigue [None]
  - Abdominal pain [Not Recovered/Not Resolved]
  - Blood pressure increased [None]
  - Vein rupture [None]
  - Headache [None]

NARRATIVE: CASE EVENT DATE: 2018
